FAERS Safety Report 13479206 (Version 1)
Quarter: 2017Q2

REPORT INFORMATION
  Report Type: Spontaneous
  Country: BR (occurrence: BR)
  Receive Date: 20170425
  Receipt Date: 20170425
  Transmission Date: 20170830
  Serious: Yes (Life-Threatening, Hospitalization, Other)
  Sender: FDA-Public Use
  Company Number: BR-ASTRAZENECA-2017SE42706

PATIENT
  Age: 20 Year
  Sex: Female

DRUGS (8)
  1. QUET XR [Suspect]
     Active Substance: QUETIAPINE FUMARATE
     Dosage: 10.0DF ONCE/SINGLE ADMINISTRATION
     Route: 048
     Dates: start: 20170421, end: 20170421
  2. DONAREN [Suspect]
     Active Substance: TRAZODONE HYDROCHLORIDE
     Dosage: 15.0DF ONCE/SINGLE ADMINISTRATION
     Route: 048
     Dates: start: 20170421, end: 20170421
  3. LISADOR [Suspect]
     Active Substance: DIPYRONE\PROMETHAZINE HYDROCHLORIDE
     Dosage: 5.0DF ONCE/SINGLE ADMINISTRATION
     Route: 048
     Dates: start: 20170421, end: 20170421
  4. SEROQUEL [Suspect]
     Active Substance: QUETIAPINE FUMARATE
     Dosage: 25.0DF ONCE/SINGLE ADMINISTRATION
     Route: 048
     Dates: start: 20170421, end: 20170421
  5. ZOLPIDEM [Suspect]
     Active Substance: ZOLPIDEM\ZOLPIDEM TARTRATE
     Dosage: 20.0DF ONCE/SINGLE ADMINISTRATION
     Route: 048
     Dates: start: 20170421, end: 20170421
  6. TANDRILAX [Suspect]
     Active Substance: ACETAMINOPHEN\CAFFEINE\CARISOPRODOL\DICLOFENAC SODIUM
     Dosage: ONCE
     Route: 048
     Dates: start: 20170421, end: 20170421
  7. NEOSALDINA [Suspect]
     Active Substance: CAFFEINE\ISOMETHEPTENE\METHIMAZOLE
     Dosage: 5.0DF ONCE/SINGLE ADMINISTRATION
     Route: 048
     Dates: start: 20170421, end: 20170421
  8. DORFLEX [Suspect]
     Active Substance: CAFFEINE\DIPYRONE\ORPHENADRINE
     Dosage: 20.0DF ONCE/SINGLE ADMINISTRATION
     Route: 048
     Dates: start: 20170421, end: 20170421

REACTIONS (2)
  - Toxicity to various agents [Unknown]
  - Suicide attempt [Recovered/Resolved]

NARRATIVE: CASE EVENT DATE: 20170421
